FAERS Safety Report 9115349 (Version 1)
Quarter: 2013Q1

REPORT INFORMATION
  Report Type: Spontaneous
  Country: US (occurrence: None)
  Receive Date: 20130225
  Receipt Date: 20130225
  Transmission Date: 20140127
  Serious: Yes (Death, Other)
  Sender: FDA-Public Use
  Company Number: None

PATIENT
  Age: 41 Year
  Sex: Male
  Weight: 220 kg

DRUGS (2)
  1. METHYLPREDNISOLONE NOS [Suspect]
     Indication: MUSCLE RELAXANT THERAPY
     Dates: start: 20121215
  2. METHYLPREDNISOLONE NOS [Suspect]
     Indication: PAIN
     Dates: start: 20121215

REACTIONS (1)
  - Pneumonia [None]
